FAERS Safety Report 6434452-2 (Version None)
Quarter: 2009Q4

REPORT INFORMATION
  Report Type: 
  Country: None (occurrence: None)
  Receive Date: 20091110
  Receipt Date: 20091029
  Transmission Date: 20100525
  Serious: Yes (Other)
  Sender: FDA-Public Use
  Company Number: JP-PFIZER INC-2009290458

PATIENT
  Age: 44 Year
  Sex: Male

DRUGS (3)
  1. ZOLOFT [Suspect]
     Indication: DEPRESSION
     Dosage: UNK
     Route: 048
     Dates: start: 20091008
  2. MYSLEE [Suspect]
     Dosage: UNK
     Route: 048
     Dates: start: 20091008
  3. YOKUKAN-SAN [Suspect]
     Dosage: UNK
     Route: 048
     Dates: start: 20091008

REACTIONS (1)
  - VISUAL ACUITY REDUCED [None]
